FAERS Safety Report 5894480-2 (Version None)
Quarter: 2008Q3

REPORT INFORMATION
  Report Type: 
  Country: None (occurrence: None)
  Receive Date: 20080923
  Receipt Date: 20080923
  Transmission Date: 20090109
  Serious: Yes (Hospitalization, Other)
  Sender: FDA-Public Use
  Company Number: None

PATIENT
  Age: 69 Year
  Sex: Female

DRUGS (1)
  1. SUPARTZ (SODIUM HYALURONATE) [Suspect]

REACTIONS (4)
  - BONE DISORDER [None]
  - GASTROINTESTINAL DISORDER [None]
  - NERVE INJURY [None]
  - RENAL FAILURE [None]
